FAERS Safety Report 24209433 (Version 1)
Quarter: 2024Q3

REPORT INFORMATION
  Report Type: Spontaneous
  Country: BE (occurrence: BE)
  Receive Date: 20240814
  Receipt Date: 20240814
  Transmission Date: 20241016
  Serious: Yes (Hospitalization, Other)
  Sender: RANBAXY
  Company Number: BE-SUN PHARMACEUTICAL INDUSTRIES LTD-2024R1-462365

PATIENT
  Age: 26 Year
  Sex: Male

DRUGS (2)
  1. SULFASALAZINE [Suspect]
     Active Substance: SULFASALAZINE
     Indication: Rheumatoid arthritis
     Dosage: 500 MILLIGRAM 5 TIMES PER DAY
     Route: 065
  2. SULFASALAZINE [Suspect]
     Active Substance: SULFASALAZINE
     Indication: Spondyloarthropathy

REACTIONS (7)
  - Drug reaction with eosinophilia and systemic symptoms [Unknown]
  - Splenomegaly [Unknown]
  - Toxicity to various agents [Unknown]
  - Ascites [Unknown]
  - Hepatosplenomegaly [Unknown]
  - Pleural effusion [Unknown]
  - Hepatic steatosis [Unknown]
